FAERS Safety Report 10654410 (Version 1)
Quarter: 2014Q4

REPORT INFORMATION
  Report Type: Report from Study
  Country: PH (occurrence: PH)
  Receive Date: 20141216
  Receipt Date: 20141216
  Transmission Date: 20150529
  Serious: Yes (Other)
  Sender: FDA-Public Use
  Company Number: PHHY2014PH160243

PATIENT
  Sex: Female

DRUGS (1)
  1. GLIVEC [Suspect]
     Active Substance: IMATINIB MESYLATE
     Indication: CHRONIC MYELOID LEUKAEMIA
     Dosage: 800 MG, FOETAL DRUG EXPOSURE VIA FATHER
     Route: 065

REACTIONS (2)
  - Exposure via father [Unknown]
  - Stillbirth [Unknown]

NARRATIVE: CASE EVENT DATE: 201402
